FAERS Safety Report 18359097 (Version 1)
Quarter: 2020Q4

REPORT INFORMATION
  Report Type: Spontaneous
  Country: US (occurrence: US)
  Receive Date: 20201007
  Receipt Date: 20201007
  Transmission Date: 20210114
  Serious: No
  Sender: FDA-Public Use
  Company Number: None

PATIENT
  Age: 25 Year
  Sex: Male
  Weight: 74.25 kg

DRUGS (5)
  1. BENADRYL [Concomitant]
     Active Substance: DIPHENHYDRAMINE HYDROCHLORIDE
  2. MELATONIN [Concomitant]
     Active Substance: MELATONIN
  3. METHOCARBAMOL. [Suspect]
     Active Substance: METHOCARBAMOL
     Indication: MUSCULOSKELETAL INJURY
     Dosage: ?          QUANTITY:1 TABLET(S);?
     Route: 048
     Dates: start: 20201006, end: 20201007
  4. CITIRAZINE [Concomitant]
  5. CENTRUM MEN^S [Concomitant]

REACTIONS (12)
  - Therapy non-responder [None]
  - Hyperhidrosis [None]
  - Nausea [None]
  - Confusional state [None]
  - Headache [None]
  - Vision blurred [None]
  - Affective disorder [None]
  - Malaise [None]
  - Pain [None]
  - Anxiety [None]
  - Bradycardia [None]
  - Apathy [None]

NARRATIVE: CASE EVENT DATE: 20201007
